FAERS Safety Report 8573973-3 (Version None)
Quarter: 2012Q2

REPORT INFORMATION
  Report Type: 
  Country: None (occurrence: None)
  Receive Date: 20120423
  Receipt Date: 20100804
  Transmission Date: 20120825
  Serious: Yes (Hospitalization)
  Sender: FDA-Public Use
  Company Number: PHEH2009US16504

PATIENT
  Age: 23 Year
  Sex: Female
  Weight: 68.5 kg

DRUGS (2)
  1. EXJADE [Suspect]
     Indication: SICKLE CELL ANAEMIA
     Dosage: 1750 MG, DAILY, ORAL
     Route: 048
     Dates: start: 20070207
  2. EXJADE [Suspect]
     Indication: IRON OVERLOAD
     Dosage: 1750 MG, DAILY, ORAL
     Route: 048
     Dates: start: 20070207

REACTIONS (1)
  - SICKLE CELL ANAEMIA WITH CRISIS [None]
